FAERS Safety Report 17432749 (Version 1)
Quarter: 2020Q1

REPORT INFORMATION
  Report Type: Spontaneous
  Country: FR (occurrence: FR)
  Receive Date: 20200218
  Receipt Date: 20200218
  Transmission Date: 20200409
  Serious: Yes (Other)
  Sender: FDA-Public Use
  Company Number: FR-AUROBINDO-AUR-APL-2020-007887

PATIENT
  Age: 76 Year
  Sex: Female
  Weight: 55 kg

DRUGS (3)
  1. FRUSEMIDE ARROW 20 MG SCORED TABLETS [Suspect]
     Active Substance: FUROSEMIDE
     Indication: CARDIAC FAILURE
     Dosage: 20 MILLIGRAM, ONCE A DAY
     Route: 048
     Dates: start: 20200115, end: 20200118
  2. CORTANCYL [Interacting]
     Active Substance: PREDNISONE
     Indication: BLADDER CANCER
     Dosage: 120 MILLIGRAM, ONCE A DAY
     Route: 048
  3. SALBUTAMOL [Interacting]
     Active Substance: ALBUTEROL
     Indication: DYSPNOEA
     Dosage: 10 MILLIGRAM, ONCE A DAY
     Route: 055
     Dates: start: 20200113, end: 20200115

REACTIONS (1)
  - Hypokalaemia [Recovered/Resolved]

NARRATIVE: CASE EVENT DATE: 20200116
